FAERS Safety Report 7963421-6 (Version None)
Quarter: 2011Q4

REPORT INFORMATION
  Report Type: 
  Country: None (occurrence: None)
  Receive Date: 20111205
  Receipt Date: 20101117
  Transmission Date: 20120403
  Serious: Yes (Other)
  Sender: FDA-Public Use
  Company Number: 2010CP000311

PATIENT

DRUGS (1)
  1. ACETAMINOPHEN [Suspect]
     Dosage: IV
     Route: 042

REACTIONS (4)
  - PARAESTHESIA [None]
  - DYSPNOEA [None]
  - LOSS OF CONSCIOUSNESS [None]
  - MOVEMENT DISORDER [None]
